FAERS Safety Report 11266173 (Version 1)
Quarter: 2015Q3

REPORT INFORMATION
  Report Type: Spontaneous
  Country: US (occurrence: US)
  Receive Date: 20150713
  Receipt Date: 20150713
  Transmission Date: 20151125
  Serious: No
  Sender: FDA-Public Use
  Company Number: US-TAKEDA-2013-00797

PATIENT
  Sex: Female

DRUGS (3)
  1. VELCADE [Suspect]
     Active Substance: BORTEZOMIB
     Indication: PLASMA CELL MYELOMA
     Dosage: 3.3 MG, UNK
     Route: 042
     Dates: start: 20120920, end: 20121004
  2. ZOMETA [Concomitant]
     Active Substance: ZOLEDRONIC ACID
     Indication: PRODUCT USED FOR UNKNOWN INDICATION
     Route: 065
  3. VELCADE [Suspect]
     Active Substance: BORTEZOMIB
     Dosage: 2.8 MG, UNK
     Route: 042
     Dates: start: 20121116

REACTIONS (2)
  - Pain [Unknown]
  - Fatigue [Unknown]
